FAERS Safety Report 4855959-5 (Version None)
Quarter: 2005Q4

REPORT INFORMATION
  Report Type: 
  Country: None (occurrence: None)
  Receive Date: 20051214
  Receipt Date: 20051129
  Transmission Date: 20060501
  Serious: Yes (Other)
  Sender: FDA-Public Use
  Company Number: PHBS2005US18085

PATIENT
  Age: 70 Year
  Sex: Female

DRUGS (1)
  1. VISUDYNE [Suspect]

REACTIONS (3)
  - EYE OPERATION COMPLICATION [None]
  - RETINAL PIGMENT EPITHELIOPATHY [None]
  - RETINAL TEAR [None]
